FAERS Safety Report 14141076 (Version 1)
Quarter: 2017Q4

REPORT INFORMATION
  Report Type: Spontaneous
  Country: US (occurrence: None)
  Receive Date: 20171028
  Receipt Date: 20171028
  Transmission Date: 20180321
  Serious: Yes (Death, Hospitalization)
  Sender: FDA-Public Use
  Company Number: None

PATIENT
  Age: 77 Year
  Sex: Male
  Weight: 7508 kg

DRUGS (1)
  1. NEXAVAR [Suspect]
     Active Substance: SORAFENIB
     Dates: end: 20170507

REACTIONS (6)
  - Chest pain [None]
  - Lactic acidosis [None]
  - Large intestine perforation [None]
  - Septic shock [None]
  - Troponin increased [None]
  - Pneumoperitoneum [None]

NARRATIVE: CASE EVENT DATE: 20170508
